FAERS Safety Report 21368100 (Version 1)
Quarter: 2022Q3

REPORT INFORMATION
  Report Type: Spontaneous
  Country: US (occurrence: US)
  Receive Date: 20220923
  Receipt Date: 20220923
  Transmission Date: 20221027
  Serious: No
  Sender: FDA-Public Use
  Company Number: US-SA-SAC20220921000279

PATIENT
  Age: 19 Year
  Sex: Female

DRUGS (1)
  1. DUPIXENT [Suspect]
     Active Substance: DUPILUMAB
     Dosage: 300 MG
     Route: 058

REACTIONS (6)
  - Fear of injection [Unknown]
  - Fatigue [Unknown]
  - Hyposmia [Unknown]
  - Hypoaesthesia [Unknown]
  - Dry eye [Unknown]
  - Injection site pain [Unknown]
